FAERS Safety Report 12654080 (Version 1)
Quarter: 2016Q3

REPORT INFORMATION
  Report Type: Spontaneous
  Country: US (occurrence: None)
  Receive Date: 20160815
  Receipt Date: 20160815
  Transmission Date: 20161109
  Serious: Yes (Other)
  Sender: FDA-Public Use
  Company Number: None

PATIENT
  Age: 61 Year
  Sex: Female

DRUGS (1)
  1. ALPRAZOLAM, 2MG ACTIVIS [Suspect]
     Active Substance: ALPRAZOLAM
     Indication: ANXIETY
     Route: 048
     Dates: start: 20160813, end: 20160813

REACTIONS (3)
  - Burning sensation [None]
  - Hypersensitivity [None]
  - Headache [None]

NARRATIVE: CASE EVENT DATE: 20160813
